FAERS Safety Report 14150654 (Version 1)
Quarter: 2017Q4

REPORT INFORMATION
  Report Type: Spontaneous
  Country: US (occurrence: US)
  Receive Date: 20171101
  Receipt Date: 20171101
  Transmission Date: 20180321
  Serious: No
  Sender: FDA-Public Use
  Company Number: US-B.I. PHARMACEUTICALS,INC./RIDGEFIELD-2017-BI-058143

PATIENT
  Age: 79 Year
  Sex: Female

DRUGS (3)
  1. CATAPRES-TTS [Suspect]
     Active Substance: CLONIDINE
     Indication: HYPERTENSION
     Dosage: FORM STRENGTH:5.0MG(0.2MG/DAY) ADMINISTRATION CORRECT? YES ACTION TAKEN WITH PRODUCT: DOSE INCREASED
     Route: 058
     Dates: start: 2013
  2. CATAPRES-TTS [Suspect]
     Active Substance: CLONIDINE
     Dosage: 1 PATCH PER WEEK;  FORM STRENGTH: 7.5 MG (0.3 MG / DAY); FORMULATION: PATCH? ADMINISTRATION CORRECT?
     Route: 061
     Dates: start: 201702, end: 201708
  3. CATAPRES-TTS [Suspect]
     Active Substance: CLONIDINE
     Dosage: 1 PATCH PER WEEK;  FORM STRENGTH: 5.0 MG (0.2 MG / DAY); FORMULATION: PATCH? ADMINISTRATION CORRECT?
     Route: 061
     Dates: start: 201708

REACTIONS (7)
  - Balance disorder [Unknown]
  - Speech disorder [Unknown]
  - Oedema peripheral [Unknown]
  - Amnesia [Unknown]
  - Hyperhidrosis [Unknown]
  - Unevaluable event [Unknown]
  - Apathy [Unknown]

NARRATIVE: CASE EVENT DATE: 201702
